FAERS Safety Report 23911155 (Version 1)
Quarter: 2024Q2

REPORT INFORMATION
  Report Type: Spontaneous
  Country: US (occurrence: None)
  Receive Date: 20240528
  Receipt Date: 20240528
  Transmission Date: 20240716
  Serious: Yes (Hospitalization)
  Sender: FDA-Public Use
  Company Number: None

PATIENT
  Sex: Female

DRUGS (3)
  1. ALBUTEROL SULFATE [Suspect]
     Active Substance: ALBUTEROL SULFATE
     Indication: Chronic obstructive pulmonary disease
     Dosage: OTHER QUANTITY : INHALE 2 PUFFS;?FREQUENCY : EVERY 4 TO 6 HOURS;? INHALE 2 PUFFS BY MOUTH EVERY 4 TQ
     Route: 055
     Dates: start: 20231115
  2. PREDNISONE [Concomitant]
     Active Substance: PREDNISONE
  3. TRELEGY ELLIPTA [Concomitant]
     Active Substance: FLUTICASONE FUROATE\UMECLIDINIUM BROMIDE\VILANTEROL TRIFENATATE

REACTIONS (1)
  - Dehydration [None]
